FAERS Safety Report 10997326 (Version 1)
Quarter: 2015Q2

REPORT INFORMATION
  Report Type: Spontaneous
  Country: PL (occurrence: PL)
  Receive Date: 20150408
  Receipt Date: 20150408
  Transmission Date: 20150821
  Serious: Yes (Other)
  Sender: FDA-Public Use
  Company Number: PL-SYMPLMED PHARMACEUTICALS-2015SYMPLMED000008

PATIENT

DRUGS (1)
  1. CO-PRESTARIUM [Suspect]
     Active Substance: AMLODIPINE\PERINDOPRIL
     Indication: HYPERTENSION
     Dosage: 5MG/5MG, 1 TABLET DAILY
     Dates: start: 201503

REACTIONS (4)
  - Malaise [Unknown]
  - Hypoaesthesia [Not Recovered/Not Resolved]
  - Gait disturbance [Unknown]
  - Hypertension [Unknown]

NARRATIVE: CASE EVENT DATE: 201503
